FAERS Safety Report 5792350-1 (Version None)
Quarter: 2008Q2

REPORT INFORMATION
  Report Type: 
  Country: None (occurrence: None)
  Receive Date: 20080623
  Receipt Date: 20080606
  Transmission Date: 20081010
  Serious: Yes (Hospitalization, Other)
  Sender: FDA-Public Use
  Company Number: 230002E08CZE

PATIENT
  Age: 37 Year
  Sex: Female
  Weight: 84 kg

DRUGS (4)
  1. REBIF [Suspect]
     Dosage: SEE IMAGE
     Route: 058
     Dates: start: 20070531, end: 20070613
  2. REBIF [Suspect]
     Dosage: SEE IMAGE
     Route: 058
     Dates: start: 20070615, end: 20070627
  3. REBIF [Suspect]
     Dosage: SEE IMAGE
     Route: 058
     Dates: start: 20070629, end: 20080417
  4. IBUPROFEN [Concomitant]

REACTIONS (3)
  - ABORTION SPONTANEOUS [None]
  - DRUG EXPOSURE DURING PREGNANCY [None]
  - PREGNANCY [None]
